FAERS Safety Report 6887893-3 (Version None)
Quarter: 2010Q3

REPORT INFORMATION
  Report Type: 
  Country: None (occurrence: None)
  Receive Date: 20100730
  Receipt Date: 20100720
  Transmission Date: 20110219
  Serious: Yes (Other)
  Sender: FDA-Public Use
  Company Number: CA-JNJFOC-20100706837

PATIENT
  Sex: Male
  Weight: 90 kg

DRUGS (3)
  1. REMICADE [Suspect]
     Indication: CROHN'S DISEASE
     Dosage: DOSE SPECIFIED AS ^400^
     Route: 042
  2. IMURAN [Concomitant]
  3. UNSPECIFIED GENERIC DRUG [Concomitant]
     Indication: GASTROOESOPHAGEAL REFLUX DISEASE

REACTIONS (4)
  - CARDIOMEGALY [None]
  - CHRONIC SINUSITIS [None]
  - HEAT STROKE [None]
  - LOSS OF CONSCIOUSNESS [None]
